FAERS Safety Report 18275741 (Version 2)
Quarter: 2020Q3

REPORT INFORMATION
  Report Type: Spontaneous
  Country: IE (occurrence: IE)
  Receive Date: 20200916
  Receipt Date: 20200925
  Transmission Date: 20201103
  Serious: Yes (Other)
  Sender: FDA-Public Use
  Company Number: NVSC2020IE249511

PATIENT
  Age: 61 Year
  Sex: Female

DRUGS (8)
  1. BUSCOPAN [Concomitant]
     Active Substance: BUTYLSCOPOLAMINE BROMIDE
     Indication: PRODUCT USED FOR UNKNOWN INDICATION
     Dosage: 40 MG (PLUS PRNS)
     Route: 065
     Dates: start: 20200616
  2. ENOXAPARIN [Concomitant]
     Active Substance: ENOXAPARIN
     Indication: PULMONARY EMBOLISM
     Dosage: 85 MG, Q24H
     Route: 065
     Dates: start: 20200328
  3. LINEZOLID. [Suspect]
     Active Substance: LINEZOLID
     Indication: PERICARDIAL EFFUSION
     Dosage: 600 MG, Q12H (BD)
     Route: 042
     Dates: start: 20200625, end: 20200820
  4. ENOXAPARIN [Concomitant]
     Active Substance: ENOXAPARIN
     Indication: DEEP VEIN THROMBOSIS
  5. MEROPENEM. [Concomitant]
     Active Substance: MEROPENEM
     Indication: PERICARDIAL EFFUSION
     Dosage: 1 G, Q8H (1G TDS)
     Route: 065
     Dates: start: 20200604, end: 20200820
  6. ANIDULAFUNGIN [Concomitant]
     Active Substance: ANIDULAFUNGIN
     Indication: PERICARDIAL EFFUSION
     Dosage: 100 MG, Q24H
     Route: 065
     Dates: start: 20200709, end: 20200820
  7. LEVOMEPROMAZIN [Concomitant]
     Active Substance: LEVOMEPROMAZINE
     Indication: NAUSEA
     Dosage: 12.5 MG (12.5MG VIA CSCI (CONTINUOUS SUBCUTANEOUS INFUSION)
     Route: 058
     Dates: start: 20200616
  8. PANTOPRAZOLE [Concomitant]
     Active Substance: PANTOPRAZOLE
     Indication: GASTRITIS
     Dosage: 40 MG, Q12H (BD)
     Route: 065
     Dates: start: 20200328

REACTIONS (2)
  - Intentional product use issue [Unknown]
  - Lactic acidosis [Recovered/Resolved]

NARRATIVE: CASE EVENT DATE: 20200820
